FAERS Safety Report 4411738-4 (Version None)
Quarter: 2004Q3

REPORT INFORMATION
  Report Type: 
  Country: None (occurrence: None)
  Receive Date: 20040727
  Receipt Date: 20040714
  Transmission Date: 20050211
  Serious: Yes (Other)
  Sender: FDA-Public Use
  Company Number: CA-JNJFOC-20040702516

PATIENT
  Age: 17 Year
  Sex: Female

DRUGS (4)
  1. REMICADE [Suspect]
     Indication: CROHN'S DISEASE
     Dosage: 400 MG, 1 IN 12 WEEK, INTRAVENOUS
     Route: 042
     Dates: start: 20010101
  2. LOSEC (OMEPRAZOLE) [Concomitant]
  3. TEGRETOL [Concomitant]
  4. MERCAPTOPURINE [Concomitant]

REACTIONS (6)
  - EYE REDNESS [None]
  - FUNGAL INFECTION [None]
  - LUPUS-LIKE SYNDROME [None]
  - PHOTOSENSITIVITY REACTION [None]
  - SKIN PAPILLOMA [None]
  - SWELLING FACE [None]
